FAERS Safety Report 6454698-7 (Version None)
Quarter: 2009Q4

REPORT INFORMATION
  Report Type: 
  Country: None (occurrence: None)
  Receive Date: 20091124
  Receipt Date: 20091117
  Transmission Date: 20100525
  Serious: Yes (Hospitalization)
  Sender: FDA-Public Use
  Company Number: US-ELI_LILLY_AND_COMPANY-US200911004696

PATIENT
  Sex: Female
  Weight: 79.819 kg

DRUGS (13)
  1. PEMETREXED [Suspect]
     Indication: NON-SMALL CELL LUNG CANCER
     Dosage: 500 MG/M2, OTHER
     Route: 042
     Dates: start: 20090918
  2. CARBOPLATIN [Suspect]
     Indication: NON-SMALL CELL LUNG CANCER
     Dosage: 6 D/F, OTHER
     Route: 042
     Dates: start: 20090918
  3. BEVACIZUMAB [Suspect]
     Indication: NON-SMALL CELL LUNG CANCER
     Dosage: 15 MG/KG, OTHER
     Route: 042
     Dates: start: 20090918
  4. FOLIC ACID [Concomitant]
     Indication: PROPHYLAXIS
     Dates: start: 20090903
  5. LORAZEPAM [Concomitant]
     Indication: NAUSEA
     Dates: start: 20090920
  6. LEVOTHROID [Concomitant]
     Indication: HYPOTHYROIDISM
     Dates: start: 20090101
  7. ASPIRIN [Concomitant]
     Dates: start: 20090101
  8. METOPROLOL TARTRATE [Concomitant]
     Indication: HYPERTENSION
     Dates: start: 20010101
  9. PRILOSEC [Concomitant]
     Indication: GASTROOESOPHAGEAL REFLUX DISEASE
     Dates: start: 20090101
  10. AMLODIPINE [Concomitant]
     Indication: HYPERTENSION
     Dates: start: 20080101
  11. VYTORIN [Concomitant]
     Indication: HYPERLIPIDAEMIA
     Dates: start: 20050101
  12. ZOLOFT [Concomitant]
     Indication: DEPRESSION
     Dates: start: 20091001
  13. VITAMINS [Concomitant]
     Indication: SUPPLEMENTATION THERAPY
     Dates: start: 20090101

REACTIONS (2)
  - ANAEMIA [None]
  - CHEST PAIN [None]
